FAERS Safety Report 22524500 (Version 2)
Quarter: 2023Q2

REPORT INFORMATION
  Report Type: Spontaneous
  Country: US (occurrence: US)
  Receive Date: 20230606
  Receipt Date: 20230616
  Transmission Date: 20230721
  Serious: No
  Sender: FDA-Public Use
  Company Number: US-FreseniusKabi-FK202307805

PATIENT
  Age: 38 Year
  Sex: Female
  Weight: 56.2 kg

DRUGS (3)
  1. CEFOTETAN [Suspect]
     Active Substance: CEFOTETAN DISODIUM
     Indication: Anti-infective therapy
     Dosage: CEFOTETAN 2GM ADMINISTRATION
     Route: 042
     Dates: start: 20230530, end: 20230530
  2. CEFOTETAN [Suspect]
     Active Substance: CEFOTETAN DISODIUM
     Dosage: CEFOTETAN 2GM ADMINISTRATION
     Route: 042
     Dates: start: 20230530, end: 20230530
  3. UNSPECIFIED INGREDIENT [Concomitant]
     Active Substance: UNSPECIFIED INGREDIENT
     Indication: Anaesthesia

REACTIONS (2)
  - Urticaria [Recovered/Resolved]
  - Rash erythematous [Recovered/Resolved]

NARRATIVE: CASE EVENT DATE: 20230530
